FAERS Safety Report 10227068 (Version 1)
Quarter: 2014Q2

REPORT INFORMATION
  Report Type: Spontaneous
  Country: US (occurrence: US)
  Receive Date: 20140610
  Receipt Date: 20140610
  Transmission Date: 20141212
  Serious: Yes (Hospitalization)
  Sender: FDA-Public Use
  Company Number: US-SHIRE-US201402703

PATIENT
  Age: 17 Year
  Sex: Female

DRUGS (1)
  1. VYVANSE [Suspect]
     Indication: PRODUCT USED FOR UNKNOWN INDICATION
     Dosage: 2000 MG (50- 40 MG TABLETS), ONE DOSE
     Route: 048

REACTIONS (9)
  - Intentional overdose [Unknown]
  - Chest pain [Unknown]
  - Hypertension [Unknown]
  - Headache [Unknown]
  - Vision blurred [Unknown]
  - Nausea [Unknown]
  - Vomiting [Unknown]
  - Mydriasis [Unknown]
  - Tremor [Unknown]
